FAERS Safety Report 13121437 (Version 1)
Quarter: 2017Q1

REPORT INFORMATION
  Report Type: Spontaneous
  Country: US (occurrence: US)
  Receive Date: 20170114
  Receipt Date: 20170114
  Transmission Date: 20170428
  Serious: Yes (Other)
  Sender: FDA-Public Use
  Company Number: None

PATIENT
  Age: 38 Year
  Sex: Female
  Weight: 143.55 kg

DRUGS (9)
  1. CYTOMEL [Concomitant]
     Active Substance: LIOTHYRONINE SODIUM
  2. LEXAPRO [Concomitant]
     Active Substance: ESCITALOPRAM OXALATE
  3. TYLENOL [Concomitant]
     Active Substance: ACETAMINOPHEN
  4. LEVOTHYROXIN [Concomitant]
     Active Substance: LEVOTHYROXINE
  5. SULFASALAZINE. [Concomitant]
     Active Substance: SULFASALAZINE
  6. SKELAXIN [Concomitant]
     Active Substance: METAXALONE
  7. TOPAMAX [Concomitant]
     Active Substance: TOPIRAMATE
  8. RELPAX [Suspect]
     Active Substance: ELETRIPTAN HYDROBROMIDE
     Indication: MIGRAINE
     Dosage: ?          QUANTITY:9 TABLET(S);?
     Route: 048
     Dates: start: 20161001, end: 20170109
  9. GABAPENTIN. [Concomitant]
     Active Substance: GABAPENTIN

REACTIONS (5)
  - Chest discomfort [None]
  - Dyspnoea [None]
  - Chest pain [None]
  - Migraine [None]
  - Cardiomegaly [None]

NARRATIVE: CASE EVENT DATE: 20170112
